FAERS Safety Report 6961002-4 (Version None)
Quarter: 2010Q3

REPORT INFORMATION
  Report Type: 
  Country: None (occurrence: None)
  Receive Date: 20100823
  Receipt Date: 20100709
  Transmission Date: 20110219
  Serious: No
  Sender: FDA-Public Use
  Company Number: 015367

PATIENT
  Sex: Female
  Weight: 44.5 kg

DRUGS (8)
  1. CIMZIA [Suspect]
     Indication: CROHN'S DISEASE
     Dosage: (200 MG 1X/2 WEEKS SUBCUTANEOUS)
     Route: 058
     Dates: start: 20100101
  2. NEXIUM [Concomitant]
  3. ESTRADIOL [Concomitant]
  4. ELAVIL [Concomitant]
  5. PERCOCET [Concomitant]
  6. OXYCONTIN [Concomitant]
  7. PHENERGAN HCL [Concomitant]
  8. VITAMIN B12 NOS [Concomitant]

REACTIONS (2)
  - INJECTION SITE PAIN [None]
  - INJECTION SITE REACTION [None]
